FAERS Safety Report 6213268-6 (Version None)
Quarter: 2009Q2

REPORT INFORMATION
  Report Type: 
  Country: None (occurrence: None)
  Receive Date: 20090603
  Receipt Date: 20090529
  Transmission Date: 20091009
  Serious: Yes (Other)
  Sender: FDA-Public Use
  Company Number: CA-MERCK-0906CAN00001

PATIENT
  Age: 45 Year
  Sex: Male

DRUGS (6)
  1. ISENTRESS [Suspect]
     Indication: HIV INFECTION
     Route: 048
     Dates: start: 20090223, end: 20090301
  2. ISENTRESS [Suspect]
     Route: 048
     Dates: start: 20070601, end: 20080901
  3. DARUNAVIR [Concomitant]
     Route: 048
     Dates: start: 20090223, end: 20090301
  4. RITONAVIR [Concomitant]
     Route: 048
     Dates: start: 20090223, end: 20090301
  5. ETRAVIRINE [Concomitant]
     Route: 048
     Dates: start: 20090223, end: 20090301
  6. LAMIVUDINE [Concomitant]
     Route: 048
     Dates: start: 20090223, end: 20090301

REACTIONS (4)
  - ANXIETY [None]
  - DEPRESSION [None]
  - MOOD SWINGS [None]
  - SUICIDAL IDEATION [None]
